FAERS Safety Report 18966850 (Version 1)
Quarter: 2021Q1

REPORT INFORMATION
  Report Type: Spontaneous
  Country: US (occurrence: US)
  Receive Date: 20210304
  Receipt Date: 20210304
  Transmission Date: 20210420
  Serious: No
  Sender: FDA-Public Use
  Company Number: US-AUROBINDO-AUR-APL-2020-030648

PATIENT
  Sex: Female

DRUGS (1)
  1. LEVETIRACETAM TABLETS 500 MG [Suspect]
     Active Substance: LEVETIRACETAM
     Indication: SEIZURE
     Dosage: 1 DOSAGE FORM, DAILY
     Route: 048
     Dates: start: 201309

REACTIONS (6)
  - Blood iron increased [Not Recovered/Not Resolved]
  - Anger [Not Recovered/Not Resolved]
  - Agitation [Not Recovered/Not Resolved]
  - Mania [Not Recovered/Not Resolved]
  - Depression [Recovered/Resolved]
  - Irritability [Not Recovered/Not Resolved]
